FAERS Safety Report 10152788 (Version 1)
Quarter: 2014Q2

REPORT INFORMATION
  Report Type: Spontaneous
  Country: US (occurrence: None)
  Receive Date: 20140502
  Receipt Date: 20140502
  Transmission Date: 20141212
  Serious: Yes (Hospitalization)
  Sender: FDA-Public Use
  Company Number: None

PATIENT
  Age: 64 Year
  Sex: Male
  Weight: 92.18 kg

DRUGS (2)
  1. ABIRATERONE ACETATE [Suspect]
     Dates: end: 20140210
  2. PREDNISONE [Suspect]
     Dates: end: 20140210

REACTIONS (3)
  - Pelvic mass [None]
  - Necrosis [None]
  - Spindle cell sarcoma [None]
